FAERS Safety Report 7868619 (Version 2)
Quarter: 2013Q1

REPORT INFORMATION
  Report Type: Spontaneous
  Country: US (occurrence: US)
  Receive Date: 20110323
  Receipt Date: 20130116
  Transmission Date: 20140127
  Serious: Yes (Other)
  Sender: FDA-Public Use
  Company Number: US-RB-024190-11

PATIENT
  Age: 38 None
  Sex: Female

DRUGS (3)
  1. SUBOXONE TABLET [Suspect]
     Indication: DRUG DEPENDENCE
     Route: 060
     Dates: start: 201003, end: 201008
  2. SUBUTEX [Suspect]
     Indication: DRUG DEPENDENCE
     Route: 060
     Dates: start: 201008
  3. LEXAPRO [Suspect]
     Indication: DEPRESSION
     Dosage: DOSAGE INFORMATION UNKNOWN- 20 MILLIGRAMS DAILY
     Route: 065
     Dates: start: 201004

REACTIONS (2)
  - Abortion spontaneous [Recovered/Resolved]
  - Exposure during pregnancy [Recovered/Resolved]
